FAERS Safety Report 23148653 (Version 7)
Quarter: 2024Q2

REPORT INFORMATION
  Report Type: Spontaneous
  Country: CA (occurrence: CA)
  Receive Date: 20231106
  Receipt Date: 20240404
  Transmission Date: 20240715
  Serious: Yes (Hospitalization, Other)
  Sender: FDA-Public Use
  Company Number: CA-PFIZER INC-202300350711

PATIENT
  Age: 56 Year
  Sex: Male

DRUGS (2)
  1. ABRILADA [Suspect]
     Active Substance: ADALIMUMAB-AFZB
     Indication: Hidradenitis
     Dosage: 1 DF, PREFILLED PEN, 160 MG ON WEEK 0, 80 MG ON WEEK 2 THEN 40 MG EVERY WEEK FROM WEEK 4
     Route: 058
     Dates: start: 20230810
  2. ABRILADA [Suspect]
     Active Substance: ADALIMUMAB-AFZB
     Dosage: 1 DF, PREFILLED PEN, 160 MG ON WEEK 0, 80 MG ON WEEK 2 THEN 40 MG EVERY WEEK FROM WEEK 4
     Route: 058
     Dates: start: 20240104

REACTIONS (7)
  - Pulmonary oedema [Not Recovered/Not Resolved]
  - Mental disorder [Not Recovered/Not Resolved]
  - Vascular graft [Recovering/Resolving]
  - Cardiac operation [Recovering/Resolving]
  - Bacterial infection [Not Recovered/Not Resolved]
  - Influenza [Recovered/Resolved]
  - Dyspnoea [Not Recovered/Not Resolved]

NARRATIVE: CASE EVENT DATE: 20230101
